FAERS Safety Report 14122112 (Version 1)
Quarter: 2017Q4

REPORT INFORMATION
  Report Type: Spontaneous
  Country: AU (occurrence: AU)
  Receive Date: 20171024
  Receipt Date: 20171024
  Transmission Date: 20180321
  Serious: Yes (Hospitalization, Other)
  Sender: FDA-Public Use
  Company Number: AU-TERSERA THERAPEUTICS, LLC-2031324

PATIENT
  Age: 32 Year
  Sex: Female

DRUGS (4)
  1. AROMASIN [Concomitant]
     Active Substance: EXEMESTANE
     Dates: start: 201608
  2. FEMARA [Concomitant]
     Active Substance: LETROZOLE
  3. ZOLADEX [Suspect]
     Active Substance: GOSERELIN ACETATE
     Indication: PRODUCT USED FOR UNKNOWN INDICATION
     Route: 058
  4. TAXOL [Concomitant]
     Active Substance: PACLITAXEL

REACTIONS (9)
  - Malignant neoplasm progression [Unknown]
  - Haemoglobin decreased [Unknown]
  - Metastases to ovary [Unknown]
  - Neutropenia [Unknown]
  - Metastases to bone [Unknown]
  - Metastases to lymph nodes [Unknown]
  - Endometriosis [Unknown]
  - Metastases to liver [Unknown]
  - Renal failure [Recovered/Resolved]

NARRATIVE: CASE EVENT DATE: 201706
